FAERS Safety Report 18473107 (Version 1)
Quarter: 2020Q4

REPORT INFORMATION
  Report Type: Spontaneous
  Country: US (occurrence: US)
  Receive Date: 20201106
  Receipt Date: 20201106
  Transmission Date: 20210114
  Serious: No
  Sender: FDA-Public Use
  Company Number: US-ELI_LILLY_AND_COMPANY-US202011002390

PATIENT
  Age: 45 Year
  Sex: Male

DRUGS (2)
  1. TRULICITY [Suspect]
     Active Substance: DULAGLUTIDE
     Indication: PRODUCT USED FOR UNKNOWN INDICATION
     Dosage: 0.75 MG, UNKNOWN
     Route: 065
     Dates: start: 201905
  2. TOPAMAX [Suspect]
     Active Substance: TOPIRAMATE
     Indication: BACK PAIN
     Dosage: 100 MG, UNKNOWN
     Route: 065
     Dates: start: 202007

REACTIONS (4)
  - Weight decreased [Unknown]
  - Staphylococcal infection [Recovered/Resolved]
  - Onychomadesis [Unknown]
  - Decreased appetite [Unknown]

NARRATIVE: CASE EVENT DATE: 202007
